FAERS Safety Report 8637681 (Version 2)
Quarter: 2012Q4

REPORT INFORMATION
  Report Type: 
  Country: US (occurrence: US)
  Receive Date: 20120627
  Receipt Date: 20121211
  Transmission Date: 20130627
  Serious: Yes (Hospitalization)
  Sender: FDA-Public Use
  Company Number: US-PFIZER INC-2012150986

PATIENT
  Age: 63 Year
  Sex: Female
  Weight: 94.79 kg

DRUGS (12)
  1. LYRICA [Suspect]
     Indication: FIBROMYALGIA
     Dosage: 100 mg, 3x/day
     Route: 048
     Dates: start: 2011
  2. ATORVASTATIN CALCIUM [Interacting]
     Indication: HIGH CHOLESTEROL
     Dosage: 80 mg, daily
  3. LISINOPRIL [Interacting]
     Indication: BLOOD PRESSURE HIGH
     Dosage: 10 mg, daily
  4. OMEPRAZOLE [Interacting]
     Indication: ACID REFLUX (ESOPHAGEAL)
     Dosage: 20.6 mg, daily
  5. TAMSULOSIN HYDROCHLORIDE [Interacting]
     Indication: BLADDER OBSTRUCTION
     Dosage: 0.4 mg, daily
     Route: 048
  6. ACETYLSALICYLIC ACID [Interacting]
     Indication: BLOOD PRESSURE HIGH
     Dosage: 81 mg, daily
  7. METHADONE [Interacting]
     Indication: BACK DISORDER
     Dosage: 10 mg, 3x/day
  8. ABILIFY [Interacting]
     Indication: DEPRESSION
     Dosage: UNK, (splitting 15 mg tablet) daily
     Route: 048
  9. VITAMIN D [Interacting]
     Indication: VITAMIN D DEFICIENCY
     Dosage: 50000 IU, weekly
  10. BISACODYL [Interacting]
     Indication: IRRITABLE BOWEL SYNDROME
     Dosage: 5 mg, daily
  11. ALLEGRA [Interacting]
     Indication: ALLERGY
     Dosage: UNK, daily
  12. CHONDROITIN SULFATE (BOVINE)\GLUCOSAMINE [Interacting]
     Indication: BACK PAIN
     Dosage: UNK,daily

REACTIONS (1)
  - Drug interaction [Unknown]
